FAERS Safety Report 14083784 (Version 1)
Quarter: 2017Q4

REPORT INFORMATION
  Report Type: Report from Study
  Country: US (occurrence: US)
  Receive Date: 20171013
  Receipt Date: 20171013
  Transmission Date: 20180321
  Serious: Yes (Hospitalization)
  Sender: FDA-Public Use
  Company Number: US-BAYER-2017-172046

PATIENT
  Age: 73 Year
  Sex: Female

DRUGS (6)
  1. ADEMPAS [Suspect]
     Active Substance: RIOCIGUAT
     Indication: PULMONARY ARTERIAL HYPERTENSION
     Dosage: 1.5 MG, TID
     Route: 048
  2. LETAIRIS [Concomitant]
     Active Substance: AMBRISENTAN
     Dosage: UNK
  3. ADEMPAS [Suspect]
     Active Substance: RIOCIGUAT
     Indication: PULMONARY ARTERIAL HYPERTENSION
     Dosage: 1.0 MG, TID
     Route: 048
  4. ADEMPAS [Suspect]
     Active Substance: RIOCIGUAT
     Indication: PULMONARY ARTERIAL HYPERTENSION
     Dosage: 1.0 MG, TID
     Route: 048
  5. ADEMPAS [Suspect]
     Active Substance: RIOCIGUAT
     Indication: PULMONARY ARTERIAL HYPERTENSION
     Dosage: UNK
     Dates: start: 20170817
  6. WARFARIN [Concomitant]
     Active Substance: WARFARIN
     Dosage: UNK

REACTIONS (10)
  - Dyspnoea [Unknown]
  - Epistaxis [Not Recovered/Not Resolved]
  - Diarrhoea [Unknown]
  - Asthenia [None]
  - Insomnia [Unknown]
  - Hospitalisation [None]
  - Fatigue [None]
  - Oedema peripheral [Unknown]
  - Nasal congestion [None]
  - Headache [Unknown]

NARRATIVE: CASE EVENT DATE: 2017
